FAERS Safety Report 26126667 (Version 1)
Quarter: 2025Q4

REPORT INFORMATION
  Report Type: Spontaneous
  Country: EU (occurrence: EU)
  Receive Date: 20251205
  Receipt Date: 20251205
  Transmission Date: 20260117
  Serious: Yes (Hospitalization, Other)
  Sender: SANDOZ
  Company Number: EU-CHEPLA-2025013446

PATIENT
  Age: 19 Year
  Sex: Male

DRUGS (14)
  1. ALPRAZOLAM [Suspect]
     Active Substance: ALPRAZOLAM
     Indication: Product used for unknown indication
     Dosage: ONGOING, PURCHASED ON THE STREET, PSYCHOLOGICAL DEPENDENCE
     Route: 065
     Dates: start: 2025
  2. ARIPIPRAZOLE [Suspect]
     Active Substance: ARIPIPRAZOLE
     Indication: Product used for unknown indication
     Dosage: 5 MILLIGRAM IN 1 DAY
     Route: 065
     Dates: start: 20250409, end: 20250904
  3. BROMAZEPAM [Suspect]
     Active Substance: BROMAZEPAM
     Indication: Product used for unknown indication
     Dosage: UNK
     Route: 065
     Dates: start: 2025
  4. CANNABIS SATIVA SUBSP. INDICA TOP [Suspect]
     Active Substance: CANNABIS SATIVA SUBSP. INDICA TOP
     Indication: Product used for unknown indication
     Dosage: 10 JOINTS PER DAY
     Route: 055
     Dates: start: 202408
  5. COCAINE [Suspect]
     Active Substance: COCAINE
     Indication: Product used for unknown indication
     Dosage: X 3.5 GRAM IN
     Route: 045
     Dates: start: 20251105, end: 20251105
  6. COCAINE [Suspect]
     Active Substance: COCAINE
     Dosage: INTAKES NOT DAILY, BUT SEVERAL TIMES A MONTH
     Route: 045
     Dates: start: 2025
  7. ALCOHOL [Suspect]
     Active Substance: ALCOHOL
     Indication: Product used for unknown indication
     Dosage: ONGOING, 3 PINTS OF BEER PER DAY
     Route: 065
     Dates: start: 202408
  8. KETAMINE [Suspect]
     Active Substance: KETAMINE
     Indication: Product used for unknown indication
     Dosage: ONGOING, ALMOST DAILY
     Route: 065
     Dates: start: 202408
  9. METHADONE [Suspect]
     Active Substance: METHADONE HYDROCHLORIDE
     Indication: Product used for unknown indication
     Dosage: UNK
     Route: 065
     Dates: start: 2025
  10. SERTRALINE [Suspect]
     Active Substance: SERTRALINE HYDROCHLORIDE
     Indication: Product used for unknown indication
     Dosage: UNK
     Route: 065
     Dates: start: 20250323, end: 20250409
  11. VALIUM [Suspect]
     Active Substance: DIAZEPAM
     Indication: Product used for unknown indication
     Route: 065
  12. FLUMAZENIL [Concomitant]
     Active Substance: FLUMAZENIL
     Indication: Product used for unknown indication
     Dosage: 0.1 MG/H
     Route: 065
  13. FLUMAZENIL [Concomitant]
     Active Substance: FLUMAZENIL
     Dosage: 1 MG/H
     Route: 065
  14. NALOXONE [Concomitant]
     Active Substance: NALOXONE
     Indication: Product used for unknown indication
     Dosage: 0.2 MG/H
     Route: 065

REACTIONS (3)
  - Drug use disorder [Recovered/Resolved]
  - Coma [Recovered/Resolved]
  - Intentional overdose [Unknown]

NARRATIVE: CASE EVENT DATE: 20251105
